FAERS Safety Report 13350051 (Version 1)
Quarter: 2017Q1

REPORT INFORMATION
  Report Type: Report from Study
  Country: US (occurrence: US)
  Receive Date: 20170320
  Receipt Date: 20170320
  Transmission Date: 20170429
  Serious: Yes (Hospitalization, Disabling, Other)
  Sender: FDA-Public Use
  Company Number: US-009507513-1703USA007859

PATIENT
  Age: 57 Year
  Sex: Female

DRUGS (1)
  1. JANUVIA [Suspect]
     Active Substance: SITAGLIPTIN PHOSPHATE
     Dosage: UNK
     Route: 048

REACTIONS (10)
  - Weight decreased [Unknown]
  - Contusion [Unknown]
  - Fall [Unknown]
  - Spinal disorder [Unknown]
  - Diabetic neuropathy [Unknown]
  - Blood glucose increased [Unknown]
  - Asthenia [Unknown]
  - Gait disturbance [Unknown]
  - Joint injury [Unknown]
  - Renal disorder [Unknown]

NARRATIVE: CASE EVENT DATE: 201602
